FAERS Safety Report 13890729 (Version 1)
Quarter: 2017Q3

REPORT INFORMATION
  Report Type: Spontaneous
  Country: RU (occurrence: RU)
  Receive Date: 20170822
  Receipt Date: 20170822
  Transmission Date: 20171127
  Serious: Yes (Death, Hospitalization, Other)
  Sender: FDA-Public Use
  Company Number: RU-SHIRE-RU201718235

PATIENT

DRUGS (1)
  1. ELAPRASE [Suspect]
     Active Substance: IDURSULFASE
     Indication: PRODUCT USED FOR UNKNOWN INDICATION
     Dosage: 3 VIALS, 1X/WEEK
     Route: 042
     Dates: start: 20170317, end: 20170714

REACTIONS (1)
  - Death [Fatal]

NARRATIVE: CASE EVENT DATE: 20170720
